FAERS Safety Report 10013777 (Version 3)
Quarter: 2014Q3

REPORT INFORMATION
  Report Type: Spontaneous
  Country: US (occurrence: US)
  Receive Date: 20140316
  Receipt Date: 20140715
  Transmission Date: 20150326
  Serious: Yes (Other)
  Sender: FDA-Public Use
  Company Number: US-BAYER-2014-037248

PATIENT
  Age: 22 Year
  Sex: Female
  Weight: 45.35 kg

DRUGS (3)
  1. MIRENA [Suspect]
     Active Substance: LEVONORGESTREL
     Indication: CONTRACEPTION
     Dosage: 20 MCG/24HR, CONT
     Route: 015
     Dates: start: 200601, end: 200711
  2. LEXAPRO [Concomitant]
     Active Substance: ESCITALOPRAM OXALATE
     Indication: DEPRESSION
  3. PREMARIN [Concomitant]
     Active Substance: ESTROGENS, CONJUGATED

REACTIONS (7)
  - Injury [None]
  - Emotional distress [None]
  - Pain [None]
  - Device issue [None]
  - Uterine perforation [None]
  - Depression [None]
  - Anxiety [None]

NARRATIVE: CASE EVENT DATE: 200611
